FAERS Safety Report 8358881-5 (Version None)
Quarter: 2012Q2

REPORT INFORMATION
  Report Type: 
  Country: None (occurrence: None)
  Receive Date: 20120515
  Receipt Date: 20120507
  Transmission Date: 20120825
  Serious: Yes (Hospitalization)
  Sender: FDA-Public Use
  Company Number: DE-BIOGENIDEC-2012BI006638

PATIENT
  Age: 28 Year
  Sex: Female
  Weight: 57 kg

DRUGS (5)
  1. PREDNISONE TAB [Concomitant]
     Indication: CROHN'S DISEASE
     Dates: start: 20110801
  2. SALOFALK STIX [Concomitant]
     Indication: CROHN'S DISEASE
  3. AVONEX [Suspect]
     Route: 030
     Dates: start: 20111001, end: 20120201
  4. PROCHLORPERAZINE [Concomitant]
     Indication: PRODUCT USED FOR UNKNOWN INDICATION
  5. AVONEX [Suspect]
     Indication: MULTIPLE SCLEROSIS
     Route: 030
     Dates: start: 20080101

REACTIONS (2)
  - POSTOPERATIVE WOUND INFECTION [None]
  - ERYTHEMA NODOSUM [None]
